FAERS Safety Report 21219958 (Version 4)
Quarter: 2022Q3

REPORT INFORMATION
  Report Type: Spontaneous
  Country: DE (occurrence: DE)
  Receive Date: 20220817
  Receipt Date: 20220830
  Transmission Date: 20221027
  Serious: Yes (Disabling)
  Sender: FDA-Public Use
  Company Number: DE-DCGMA-22199117

PATIENT
  Age: 80 Year
  Sex: Female

DRUGS (5)
  1. DARATUMUMAB [Suspect]
     Active Substance: DARATUMUMAB
     Indication: Plasma cell myeloma
     Route: 058
     Dates: start: 202105, end: 202206
  2. REVLIMID [Suspect]
     Active Substance: LENALIDOMIDE
     Indication: Plasma cell myeloma
     Dosage: 06/2021: IDIOPATHIC PARESIS OF NERVUS ABDUCENS PAUSE OF LENALIDOMIDE, CONTINUATION OF DARATUMUMAB
     Route: 048
     Dates: start: 202105, end: 202106
  3. REVLIMID [Suspect]
     Active Substance: LENALIDOMIDE
     Dosage: REEXPOSITION OF REVLIMID. 12/21 PAUSE AND REDUCTION OF DOSE LENALIDOMIDE IN STATE OF NEUTROPENIA. 03
     Route: 048
     Dates: start: 20211109, end: 202206
  4. REVLIMID [Suspect]
     Active Substance: LENALIDOMIDE
     Dosage: CHANGING DOSE. 6 CYCLES OF  REVLIMID UND DEXAMETHASON
     Route: 048
     Dates: start: 20190318, end: 201910
  5. DEXAMETHASONE [Concomitant]
     Active Substance: DEXAMETHASONE
     Indication: Product used for unknown indication
     Dosage: UNKNOWN
     Route: 065
     Dates: start: 20210510

REACTIONS (3)
  - Retinal detachment [Not Recovered/Not Resolved]
  - VIth nerve disorder [Not Recovered/Not Resolved]
  - Choroidal effusion [Not Recovered/Not Resolved]

NARRATIVE: CASE EVENT DATE: 20210609
